FAERS Safety Report 18080433 (Version 2)
Quarter: 2020Q3

REPORT INFORMATION
  Report Type: Spontaneous
  Country: US (occurrence: US)
  Receive Date: 20200728
  Receipt Date: 20200811
  Transmission Date: 20201103
  Serious: Yes (Life-Threatening, Hospitalization)
  Sender: FDA-Public Use
  Company Number: US-AMNEAL PHARMACEUTICALS-2020-AMRX-02098

PATIENT
  Age: 44 Year
  Sex: Female
  Weight: 74 kg

DRUGS (10)
  1. LEVOTHYROXINE. [Concomitant]
     Active Substance: LEVOTHYROXINE
     Indication: HYPOTHYROIDISM
     Dosage: 200 MILLIGRAM, QD
     Route: 048
     Dates: start: 2017
  2. ELAGOLIX [Suspect]
     Active Substance: ELAGOLIX
     Dosage: 2 DOSAGE FORM, QD
     Route: 048
     Dates: start: 20200713
  3. EXCEDRIN [ACETYLSALICYLIC ACID;CAFFEINE;SALICYLAMIDE] [Concomitant]
     Indication: MIGRAINE
     Dosage: UNK, AS REQUIRED
     Route: 048
     Dates: start: 1986
  4. CORTISONE [Concomitant]
     Active Substance: CORTISONE
     Indication: DERMATITIS ATOPIC
     Dosage: 3 DOSAGE FORM, DAILY
     Route: 061
     Dates: start: 2012
  5. ELAGOLIX [Suspect]
     Active Substance: ELAGOLIX
     Indication: ENDOMETRIOSIS
     Dosage: 2 DOSAGE FORM, QD
     Route: 048
     Dates: start: 20200106, end: 20200710
  6. ACTIVELLA [Suspect]
     Active Substance: ESTRADIOL\NORETHINDRONE ACETATE
     Indication: ENDOMETRIOSIS
     Dosage: 1 DOSAGE FORM, QD
     Route: 048
     Dates: start: 20190130, end: 20200710
  7. ACTIVELLA [Suspect]
     Active Substance: ESTRADIOL\NORETHINDRONE ACETATE
     Dosage: 1 DOSAGE FORM, QD
     Route: 048
     Dates: start: 20200714
  8. LISINOPRIL. [Concomitant]
     Active Substance: LISINOPRIL
     Indication: HYPERTENSION
     Dosage: 10 MILLIGRAM, 1 /DAY
     Route: 048
     Dates: start: 20190503
  9. HYDROCHLOROTHIAZIDE. [Concomitant]
     Active Substance: HYDROCHLOROTHIAZIDE
     Indication: HYPERTENSION
     Dosage: 12.5 MILLIGRAM, 1 /DAY
     Route: 048
     Dates: start: 20190503
  10. BUPROPION. [Concomitant]
     Active Substance: BUPROPION
     Indication: MIGRAINE
     Dosage: 300 MILLIGRAM, QD
     Route: 048
     Dates: start: 20190503

REACTIONS (1)
  - COVID-19 [Not Recovered/Not Resolved]

NARRATIVE: CASE EVENT DATE: 20200710
